FAERS Safety Report 8027856-8 (Version None)
Quarter: 2012Q1

REPORT INFORMATION
  Report Type: 
  Country: None (occurrence: None)
  Receive Date: 20120104
  Receipt Date: 20111227
  Transmission Date: 20120608
  Serious: Yes (Congenital Anomaly, Other)
  Sender: FDA-Public Use
  Company Number: AUR-APL-2011-06306

PATIENT
  Age: 28 Day
  Sex: Female
  Weight: 2.32 kg

DRUGS (2)
  1. RISPERIDONE [Suspect]
     Indication: PSYCHOTIC DISORDER
     Dosage: 6. -34.3. GESTATIONAL WEEK
     Dates: start: 20100211, end: 20100829
  2. ABILIFY [Concomitant]

REACTIONS (9)
  - PREMATURE BABY [None]
  - CONGENITAL HYDRONEPHROSIS [None]
  - BREECH PRESENTATION [None]
  - MATERNAL DRUGS AFFECTING FOETUS [None]
  - CAESAREAN SECTION [None]
  - POLYCYTHAEMIA [None]
  - CONGENITAL URETERIC ANOMALY [None]
  - URETERIC STENOSIS [None]
  - NEONATAL TACHYPNOEA [None]
